FAERS Safety Report 18118258 (Version 5)
Quarter: 2021Q3

REPORT INFORMATION
  Report Type: Report from Study
  Country: FR (occurrence: FR)
  Receive Date: 20200806
  Receipt Date: 20210914
  Transmission Date: 20211014
  Serious: Yes (Hospitalization)
  Sender: FDA-Public Use
  Company Number: FR-ROCHE-2652930

PATIENT
  Age: 76 Year
  Sex: Male
  Weight: 109 kg

DRUGS (13)
  1. POTASSIUM CANRENOATE [Concomitant]
     Active Substance: CANRENOATE POTASSIUM
  2. ENTRESTO [Concomitant]
     Active Substance: SACUBITRIL\VALSARTAN
  3. ARIXTRA [Concomitant]
     Active Substance: FONDAPARINUX SODIUM
  4. FUROSEMIDE. [Concomitant]
     Active Substance: FUROSEMIDE
  5. ALDACTONE [POTASSIUM CANRENOATE] [Concomitant]
     Active Substance: CANRENOATE POTASSIUM
  6. ATEZOLIZUMAB. [Suspect]
     Active Substance: ATEZOLIZUMAB
     Route: 042
     Dates: start: 20200504, end: 20200727
  7. LEVOTHYROX [Concomitant]
     Active Substance: LEVOTHYROXINE
  8. COLCHICIN [Concomitant]
     Active Substance: COLCHICINE
  9. ATEZOLIZUMAB. [Suspect]
     Active Substance: ATEZOLIZUMAB
     Indication: HEPATOCELLULAR CARCINOMA
     Dosage: ON 23/MAR/2020, HE RECEIVED MOST RECENT DOSE OF ATEZOLIZUMAB PRIOR TO ONSET OF FIRST OCCURRENCE OF A
     Route: 042
     Dates: start: 20191206, end: 20200415
  10. INNOHEP [Concomitant]
     Active Substance: TINZAPARIN SODIUM
  11. XL184 [Suspect]
     Active Substance: CABOZANTINIB
     Indication: HEPATOCELLULAR CARCINOMA
     Dosage: ON 11/APR/2020, HE RECEIVED MOST RECENT DOSE OF CABOZANTINIB PRIOR TO ONSET OF FIRST OCCURRENCE OF A
     Route: 048
     Dates: start: 20191206, end: 20200727
  12. ATEZOLIZUMAB. [Suspect]
     Active Substance: ATEZOLIZUMAB
     Route: 042
     Dates: start: 20201005
  13. XL184 [Suspect]
     Active Substance: CABOZANTINIB
     Route: 048
     Dates: start: 20201005

REACTIONS (2)
  - Acute kidney injury [Recovered/Resolved]
  - Acute kidney injury [Recovered/Resolved]

NARRATIVE: CASE EVENT DATE: 20200411
